FAERS Safety Report 25281016 (Version 1)
Quarter: 2025Q2

REPORT INFORMATION
  Report Type: Report from Study
  Country: US (occurrence: None)
  Receive Date: 20250508
  Receipt Date: 20250508
  Transmission Date: 20250717
  Serious: Yes (Other)
  Sender: ALEXION PHARMACEUTICALS
  Company Number: 202503USA028334US

PATIENT
  Age: 63 Year

DRUGS (1)
  1. OLAPARIB [Suspect]
     Active Substance: OLAPARIB
     Indication: Ovarian cancer
     Dosage: 300 MILLIGRAM, BID

REACTIONS (4)
  - Renal impairment [Unknown]
  - Nausea [Recovering/Resolving]
  - Haemoglobin decreased [Not Recovered/Not Resolved]
  - Product dose omission in error [Unknown]
